FAERS Safety Report 11909366 (Version 2)
Quarter: 2016Q3

REPORT INFORMATION
  Report Type: Spontaneous
  Country: US (occurrence: US)
  Receive Date: 20160112
  Receipt Date: 20160828
  Transmission Date: 20161109
  Serious: Yes (Other)
  Sender: FDA-Public Use
  Company Number: US-TEVA-620348USA

PATIENT
  Age: 37 Year
  Sex: Female

DRUGS (1)
  1. ZECUITY [Suspect]
     Active Substance: SUMATRIPTAN SUCCINATE
     Indication: HEADACHE
     Route: 062

REACTIONS (20)
  - Wrong technique in product usage process [Recovered/Resolved]
  - Application site bruise [Unknown]
  - Application site exfoliation [Unknown]
  - Application site discomfort [Unknown]
  - Application site swelling [Unknown]
  - Application site irritation [Unknown]
  - Application site burn [Not Recovered/Not Resolved]
  - Application site discolouration [Not Recovered/Not Resolved]
  - Circumstance or information capable of leading to medication error [Recovered/Resolved]
  - Application site erythema [Not Recovered/Not Resolved]
  - Application site urticaria [Unknown]
  - Application site erosion [Unknown]
  - Incorrect drug administration duration [Unknown]
  - Application site scar [Not Recovered/Not Resolved]
  - Application site warmth [Unknown]
  - Application site pruritus [Unknown]
  - Application site pain [Unknown]
  - Drug ineffective [Recovered/Resolved]
  - Application site pain [Unknown]
  - Application site scab [Unknown]

NARRATIVE: CASE EVENT DATE: 20151210
